FAERS Safety Report 6448851-6 (Version None)
Quarter: 2009Q4

REPORT INFORMATION
  Report Type: 
  Country: None (occurrence: None)
  Receive Date: 20091119
  Receipt Date: 20091119
  Transmission Date: 20100525
  Serious: No
  Sender: FDA-Public Use
  Company Number: None

PATIENT
  Age: 28 Year
  Sex: Female

DRUGS (1)
  1. GEODON [Suspect]
     Dosage: 40 MG BID P.O.
     Route: 048

REACTIONS (2)
  - DYSTONIA [None]
  - HYPERSENSITIVITY [None]
